FAERS Safety Report 13117011 (Version 1)
Quarter: 2017Q1

REPORT INFORMATION
  Report Type: Spontaneous
  Country: US (occurrence: US)
  Receive Date: 20170116
  Receipt Date: 20170116
  Transmission Date: 20170428
  Serious: No
  Sender: FDA-Public Use
  Company Number: US-ASTRAZENECA-2017SE02112

PATIENT
  Sex: Male
  Weight: 81.6 kg

DRUGS (16)
  1. MODAFINIL. [Concomitant]
     Active Substance: MODAFINIL
     Indication: SLEEP DISORDER
     Dates: start: 201306
  2. IRON [Concomitant]
     Active Substance: IRON
     Route: 048
  3. QUETIAPINE FUMERATE [Suspect]
     Active Substance: QUETIAPINE FUMARATE
     Indication: DEPRESSION
     Dosage: 400.0MG UNKNOWN
     Route: 048
  4. OTHER MEDICATIONS [Concomitant]
     Active Substance: UNSPECIFIED INGREDIENT
     Route: 048
  5. FLUVOXAMINE MALEATE. [Concomitant]
     Active Substance: FLUVOXAMINE MALEATE
     Indication: OBSESSIVE-COMPULSIVE DISORDER
     Dosage: 275 MG DAILY STARTED 20 OR 30 YEARS AGO
     Route: 048
  6. BUSPAR [Concomitant]
     Active Substance: BUSPIRONE HYDROCHLORIDE
     Indication: ANXIETY
     Dosage: 30 MG DAILY STARTED 20 OR 30 YEARS AGO
     Route: 048
  7. ZETIA [Concomitant]
     Active Substance: EZETIMIBE
     Indication: BLOOD CHOLESTEROL ABNORMAL
     Route: 048
     Dates: start: 2015
  8. PROPRANOLOL [Concomitant]
     Active Substance: PROPRANOLOL HYDROCHLORIDE
     Indication: TREMOR
     Route: 048
     Dates: start: 201306
  9. PRAVASTATIN. [Concomitant]
     Active Substance: PRAVASTATIN
     Route: 048
  10. VITAMIN D [Concomitant]
     Active Substance: CHOLECALCIFEROL
     Indication: VITAMIN D DECREASED
     Route: 048
     Dates: start: 201306
  11. QUETIAPINE FUMERATE [Suspect]
     Active Substance: QUETIAPINE FUMARATE
     Indication: DEPRESSION
     Dosage: 50.0MG UNKNOWN
     Route: 048
  12. QUETIAPINE FUMERATE [Suspect]
     Active Substance: QUETIAPINE FUMARATE
     Indication: DEPRESSION
     Dosage: GENERIC QUETIAPINE XR UNKNOWN
     Route: 048
  13. QUETIAPINE FUMERATE [Suspect]
     Active Substance: QUETIAPINE FUMARATE
     Indication: DEPRESSION
     Dosage: 50 MG DURING THE DAY AND 400 MG AT NIGHT  UNKNOWN
     Route: 048
     Dates: start: 201306
  14. QUETIAPINE FUMERATE [Suspect]
     Active Substance: QUETIAPINE FUMARATE
     Indication: DEPRESSION
     Dosage: 150.0MG UNKNOWN
     Route: 048
     Dates: start: 201609
  15. FLUVOXAMINE MALEATE. [Concomitant]
     Active Substance: FLUVOXAMINE MALEATE
     Indication: DEPRESSION
     Dosage: 275 MG DAILY STARTED 20 OR 30 YEARS AGO
     Route: 048
  16. MONTELUKAST [Concomitant]
     Active Substance: MONTELUKAST SODIUM
     Indication: DYSPNOEA
     Route: 048
     Dates: start: 201306

REACTIONS (6)
  - Blood iron decreased [Unknown]
  - Weight increased [Unknown]
  - Vitamin D decreased [Unknown]
  - Familial tremor [Unknown]
  - Somnolence [Unknown]
  - Circumstance or information capable of leading to medication error [Unknown]
